FAERS Safety Report 9523021 (Version 1)
Quarter: 2013Q1

REPORT INFORMATION
  Report Type: Spontaneous
  Country: US (occurrence: None)
  Receive Date: 20130305
  Receipt Date: 20130305
  Transmission Date: 20140127
  Serious: Yes (Other)
  Sender: FDA-Public Use
  Company Number: 163-21880-12032986

PATIENT
  Age: 77 Year
  Sex: Female

DRUGS (9)
  1. REVLIMID [Suspect]
     Indication: MYELODYSPLASTIC SYNDROME
     Dosage: 1 IN 1 D
     Route: 048
     Dates: start: 20110504
  2. CHOLESTYRAMINE (CHOLESTYRAMINE) (POWDER) [Concomitant]
  3. DIOVAN (VALSARTAN) (TABLETS) [Concomitant]
  4. ASPIRIN (ACETYLSALICYLIC ACID) (CHEWABLE TABLET) [Concomitant]
  5. CENTRUM SILVER (CENTRUM SILVER) (CHEWABLE TABLET) [Concomitant]
  6. GLUCOSAMINE CHONDROITIN (GLUCOSAMINE W/CHONDROITIN SULFATE) (TABLETS [Concomitant]
  7. VITAMIN D (ERGOCALCIFEROL) (CAPSULES) [Concomitant]
  8. VITAMIN C (ASCORBIC ACID) (TABLETS) [Concomitant]
  9. CRABERRY/VITAMIN C (AZO CRANBERRY) (CAPSULES) [Concomitant]

REACTIONS (4)
  - Abasia [None]
  - Arthralgia [None]
  - Myalgia [None]
  - Pain in extremity [None]
